FAERS Safety Report 4544882-1 (Version None)
Quarter: 2005Q1

REPORT INFORMATION
  Report Type: 
  Country: None (occurrence: None)
  Receive Date: 20050104
  Receipt Date: 20041220
  Transmission Date: 20050727
  Serious: No
  Sender: FDA-Public Use
  Company Number: 9533

PATIENT
  Age: 28 Year
  Sex: Male

DRUGS (1)
  1. METHOTREXATE [Suspect]

REACTIONS (11)
  - ASPERGILLOMA [None]
  - CLOSTRIDIUM COLITIS [None]
  - CYTOMEGALOVIRUS ANTIGEN POSITIVE [None]
  - DRUG WITHDRAWAL SYNDROME [None]
  - GRAFT VERSUS HOST DISEASE [None]
  - HAEMOLYSIS [None]
  - HEPATIC INFECTION [None]
  - INFLUENZA [None]
  - PNEUMOCYSTIS JIROVECI PNEUMONIA [None]
  - RENAL IMPAIRMENT [None]
  - SUDDEN DEATH [None]
